FAERS Safety Report 9426297 (Version 2)
Quarter: 2013Q3

REPORT INFORMATION
  Report Type: Spontaneous
  Country: US (occurrence: US)
  Receive Date: 20130730
  Receipt Date: 20130912
  Transmission Date: 20140515
  Serious: Yes (Hospitalization)
  Sender: FDA-Public Use
  Company Number: US-AMGEN-USASP2013049263

PATIENT
  Age: 67 Year
  Sex: Female
  Weight: 55.87 kg

DRUGS (2)
  1. PROLIA [Suspect]
     Indication: OSTEOPOROSIS POSTMENOPAUSAL
     Dosage: 60 MG, Q6MO
     Route: 058
     Dates: start: 20130328
  2. METHIMAZOLE [Concomitant]
     Dosage: UNK
     Dates: start: 20130328

REACTIONS (4)
  - Lymphoedema [Not Recovered/Not Resolved]
  - Local swelling [Not Recovered/Not Resolved]
  - Lymphadenopathy [Unknown]
  - Breast oedema [Unknown]
